FAERS Safety Report 17864330 (Version 1)
Quarter: 2020Q2

REPORT INFORMATION
  Report Type: Spontaneous
  Country: US (occurrence: US)
  Receive Date: 20200604
  Receipt Date: 20200604
  Transmission Date: 20200714
  Serious: Yes (Hospitalization, Disabling, Other)
  Sender: FDA-Public Use
  Company Number: None

PATIENT
  Age: 82 Year
  Sex: Female

DRUGS (4)
  1. AMIODARONE [Concomitant]
     Active Substance: AMIODARONE
  2. SULFAMETHOXAZOLE/TRIMETHOPRIM [Suspect]
     Active Substance: SULFAMETHOXAZOLE\TRIMETHOPRIM
     Indication: CELLULITIS
     Route: 048
  3. DOXYCYCLINE. [Suspect]
     Active Substance: DOXYCYCLINE
  4. ATORVASTATIN [Suspect]
     Active Substance: ATORVASTATIN

REACTIONS (10)
  - Dyspnoea [None]
  - Alanine aminotransferase increased [None]
  - Blood creatinine increased [None]
  - Transaminases increased [None]
  - Aspartate aminotransferase increased [None]
  - Cholelithiasis [None]
  - Acute kidney injury [None]
  - Asthenia [None]
  - Fall [None]
  - Drug-induced liver injury [None]

NARRATIVE: CASE EVENT DATE: 20200430
